FAERS Safety Report 5251115-X (Version None)
Quarter: 2007Q1

REPORT INFORMATION
  Report Type: 
  Country: None (occurrence: None)
  Receive Date: 20070228
  Receipt Date: 20060912
  Transmission Date: 20070707
  Serious: No
  Sender: FDA-Public Use
  Company Number: US-GLAXOSMITHKLINE-A0618268A

PATIENT
  Age: 55 Year
  Sex: Female

DRUGS (7)
  1. LAMICTAL [Suspect]
     Indication: ANXIETY
     Dosage: 50MG PER DAY
     Route: 048
     Dates: end: 20060906
  2. SEROQUEL [Concomitant]
  3. VALIUM [Concomitant]
  4. FLOMAX [Concomitant]
  5. MELATONIN [Concomitant]
  6. GLUCOSAMINE [Concomitant]
  7. UNSPECIFIED MEDICATION [Concomitant]

REACTIONS (2)
  - DEPRESSION [None]
  - FLUSHING [None]
